FAERS Safety Report 7552905-0 (Version None)
Quarter: 2011Q2

REPORT INFORMATION
  Report Type: 
  Country: None (occurrence: None)
  Receive Date: 20110616
  Receipt Date: 20100923
  Transmission Date: 20111010
  Serious: No
  Sender: FDA-Public Use
  Company Number: US-ASTRAZENECA-2010SE44818

PATIENT
  Sex: Female

DRUGS (6)
  1. ZOMETA [Concomitant]
  2. LASIX [Concomitant]
  3. FASLODEX [Suspect]
     Indication: BREAST CANCER
     Route: 030
     Dates: start: 20090101
  4. HERCEPTIN [Concomitant]
  5. FENTANYL-100 [Concomitant]
  6. ALLEVE [Concomitant]

REACTIONS (3)
  - INJECTION SITE REACTION [None]
  - INJECTION SITE SWELLING [None]
  - THERAPEUTIC RESPONSE UNEXPECTED [None]
